FAERS Safety Report 9991547 (Version 3)
Quarter: 2014Q2

REPORT INFORMATION
  Report Type: Spontaneous
  Country: US (occurrence: US)
  Receive Date: 20140310
  Receipt Date: 20140630
  Transmission Date: 20141212
  Serious: No
  Sender: FDA-Public Use
  Company Number: US-009507513-1403USA001745

PATIENT
  Age: 77 Year
  Sex: Female

DRUGS (9)
  1. OXYTROL FOR WOMEN [Suspect]
     Indication: HYPERTONIC BLADDER
     Dosage: UNK, UNKNOWN
     Route: 062
     Dates: start: 201311, end: 20140223
  2. OXYTROL FOR WOMEN [Suspect]
     Indication: URGE INCONTINENCE
  3. PRADAXA [Concomitant]
     Indication: MITRAL VALVE REPLACEMENT
     Dosage: UNK, UNKNOWN
  4. DIGOXIN [Concomitant]
     Indication: MITRAL VALVE REPLACEMENT
     Dosage: UNK, UNKNOWN
  5. DIGOXIN [Concomitant]
     Indication: CEREBROVASCULAR ACCIDENT
  6. DIOVAN [Concomitant]
     Indication: HYPERTENSION
     Dosage: UNK, UNKNOWN
  7. DIOVAN [Concomitant]
     Indication: CEREBROVASCULAR ACCIDENT
  8. DIOVAN [Concomitant]
     Indication: MITRAL VALVE REPLACEMENT
  9. PRAMIPEXOLE [Concomitant]
     Indication: RESTLESS LEGS SYNDROME
     Dosage: UNK, UNKNOWN

REACTIONS (4)
  - Application site discomfort [Unknown]
  - Application site irritation [Unknown]
  - Application site rash [Recovered/Resolved]
  - Application site pruritus [Recovered/Resolved]
